FAERS Safety Report 16497632 (Version 1)
Quarter: 2019Q2

REPORT INFORMATION
  Report Type: Spontaneous
  Country: US (occurrence: US)
  Receive Date: 20190628
  Receipt Date: 20190628
  Transmission Date: 20190711
  Serious: Yes (Other)
  Sender: FDA-Public Use
  Company Number: US-TEVA-2019-US-1066589

PATIENT
  Sex: Female

DRUGS (1)
  1. COPAXONE [Suspect]
     Active Substance: GLATIRAMER ACETATE
     Dosage: DOSE 40, TOOK TWO INJECTIONS, FORM STRENGTH UNKNOWN
     Route: 065

REACTIONS (4)
  - Gait disturbance [Unknown]
  - Multiple sclerosis relapse [Unknown]
  - Therapy change [Unknown]
  - Gait inability [Unknown]
